FAERS Safety Report 4677164-8 (Version None)
Quarter: 2005Q2

REPORT INFORMATION
  Report Type: 
  Country: None (occurrence: None)
  Receive Date: 20050526
  Receipt Date: 20050428
  Transmission Date: 20051028
  Serious: Yes (Life-Threatening, Other)
  Sender: FDA-Public Use
  Company Number: MAG-2005-0000344

PATIENT
  Age: 54 Year
  Sex: Male

DRUGS (14)
  1. MORPHINE SULFATE [Suspect]
     Indication: CANCER PAIN
     Dosage: SEE IMAGE
     Route: 048
     Dates: start: 20041101, end: 20041130
  2. MORPHINE SULFATE [Suspect]
     Indication: CANCER PAIN
     Dosage: SEE IMAGE
     Route: 048
     Dates: start: 20041201, end: 20041214
  3. MORPHINE SULFATE [Suspect]
     Indication: CANCER PAIN
     Dosage: SEE IMAGE
     Route: 048
     Dates: start: 20041215, end: 20041228
  4. MORPHINE SULFATE [Suspect]
     Indication: CANCER PAIN
     Dosage: SEE IMAGE
     Route: 048
     Dates: start: 20041229, end: 20050125
  5. MORPHINE SULFATE [Suspect]
     Indication: CANCER PAIN
     Dosage: SEE IMAGE
     Route: 048
     Dates: start: 20050126, end: 20050219
  6. MORPHINE SULFATE [Suspect]
     Indication: CANCER PAIN
     Dosage: SEE IMAGE
     Route: 048
     Dates: start: 20050220, end: 20050228
  7. URSODIOL [Concomitant]
  8. BIO THREE (BACTERIA NOS) [Concomitant]
  9. SENNOSIDE A [Concomitant]
  10. MORPHINE SULFATE REGIMEN [Suspect]
     Dosage: 20 MG, DAILY, ORAL
     Route: 048
     Dates: start: 20041101, end: 20041130
  11. MORPHINE SULFATE [Suspect]
     Dosage: 80 MG, DAILY, ORAL
     Route: 048
     Dates: start: 20041215, end: 20041228
  12. MORPHINE SULFATE REGIMEN [Suspect]
     Dosage: 120 MG, DAILY, ORAL
     Route: 048
     Dates: start: 20041229, end: 20050125
  13. MORPHINE SULFATE REGIMEN [Suspect]
     Dosage: 140 MG, DAILY, ORAL
     Route: 048
  14. MORPHINE SULFATE REGIMEN [Suspect]
     Dosage: 160 MG, DAILY, ORAL
     Route: 048
     Dates: start: 20050220, end: 20050228

REACTIONS (10)
  - ABNORMAL BEHAVIOUR [None]
  - BILE DUCT CANCER STAGE IV [None]
  - CONDITION AGGRAVATED [None]
  - DELIRIUM [None]
  - HAEMORRHAGE [None]
  - HALLUCINATION [None]
  - LACERATION [None]
  - LIMB INJURY [None]
  - NECK INJURY [None]
  - SELF INJURIOUS BEHAVIOUR [None]
